FAERS Safety Report 18740230 (Version 2)
Quarter: 2021Q1

REPORT INFORMATION
  Report Type: Spontaneous
  Country: ES (occurrence: ES)
  Receive Date: 20210114
  Receipt Date: 20210204
  Transmission Date: 20210419
  Serious: Yes (Other)
  Sender: FDA-Public Use
  Company Number: ES-PFIZER INC-2021019480

PATIENT
  Age: 48 Year
  Sex: Male
  Weight: 76 kg

DRUGS (9)
  1. SILODOSIN. [Concomitant]
     Active Substance: SILODOSIN
     Indication: BENIGN PROSTATIC HYPERPLASIA
     Dosage: 8 MG, EVERY 24H
     Dates: start: 20200730
  2. PRISTIQ EXTENDED?RELEASE [Suspect]
     Active Substance: DESVENLAFAXINE SUCCINATE
     Indication: MAJOR DEPRESSION
     Dosage: 50 MG EVERY 24 HOURS AT BREAKFAST
     Route: 048
     Dates: start: 20201105, end: 202011
  3. MIRTAZAPIN [Concomitant]
     Active Substance: MIRTAZAPINE
     Dosage: 15 MG
     Dates: start: 20201222
  4. SERTRALINE [Suspect]
     Active Substance: SERTRALINE HYDROCHLORIDE
     Dosage: 100 MG
     Dates: start: 20201222
  5. SERTRALINE [Suspect]
     Active Substance: SERTRALINE HYDROCHLORIDE
     Dosage: 50 MG
     Dates: start: 20201210
  6. DEPRAX [Concomitant]
     Indication: INSOMNIA
     Dosage: 100 MG, 1X/DAY, BEFORE BEDTIME
     Dates: start: 20201105, end: 20201222
  7. SERTRALINE [Suspect]
     Active Substance: SERTRALINE HYDROCHLORIDE
     Dosage: 150 MG
     Dates: start: 20210111, end: 20210119
  8. PRISTIQ EXTENDED?RELEASE [Suspect]
     Active Substance: DESVENLAFAXINE SUCCINATE
     Dosage: 200 MG, 1X/DAY
     Route: 048
     Dates: start: 20201126, end: 20201210
  9. RIVOTRIL [Concomitant]
     Active Substance: CLONAZEPAM
     Dosage: DROPS (5?5?8 )
     Dates: start: 20201222

REACTIONS (3)
  - Genital pain [Recovered/Resolved with Sequelae]
  - Dysuria [Recovered/Resolved with Sequelae]
  - Condition aggravated [Recovering/Resolving]

NARRATIVE: CASE EVENT DATE: 20201126
